FAERS Safety Report 9285175 (Version 1)
Quarter: 2013Q2

REPORT INFORMATION
  Report Type: Spontaneous
  Country: US (occurrence: US)
  Receive Date: 20130513
  Receipt Date: 20130513
  Transmission Date: 20140414
  Serious: No
  Sender: FDA-Public Use
  Company Number: US-MYLANLABS-2013S1004131

PATIENT
  Age: 63 Year
  Sex: Male
  Weight: 83.46 kg

DRUGS (6)
  1. ACEBUTOLOL HYDROCHLORIDE [Suspect]
     Indication: ARRHYTHMIA
     Route: 048
     Dates: start: 201212
  2. MORPHINE SULFATE EXTENDED-RELEASE TABLETS [Suspect]
     Indication: PAIN
     Route: 048
     Dates: start: 201212
  3. OMEPRAZOLE [Concomitant]
     Indication: BARRETT^S OESOPHAGUS
     Route: 048
  4. DILTIAZEM [Concomitant]
     Indication: ARRHYTHMIA
  5. OXYCODONE [Concomitant]
     Indication: PAIN
  6. ALPRAZOLAM [Concomitant]
     Indication: INSOMNIA

REACTIONS (5)
  - Abdominal distension [Not Recovered/Not Resolved]
  - Weight decreased [Not Recovered/Not Resolved]
  - Asthenia [Not Recovered/Not Resolved]
  - Peripheral coldness [Not Recovered/Not Resolved]
  - Decreased appetite [Not Recovered/Not Resolved]
